FAERS Safety Report 22968069 (Version 3)
Quarter: 2023Q4

REPORT INFORMATION
  Report Type: Spontaneous
  Country: BR (occurrence: BR)
  Receive Date: 20230921
  Receipt Date: 20231106
  Transmission Date: 20240109
  Serious: Yes (Other)
  Sender: FDA-Public Use
  Company Number: BR-MALLINCKRODT-MNK202304544

PATIENT
  Age: 96 Year
  Sex: Female
  Weight: 56 kg

DRUGS (1)
  1. AMITIZA [Suspect]
     Active Substance: LUBIPROSTONE
     Indication: Constipation

REACTIONS (2)
  - Gastrointestinal carcinoma [Unknown]
  - Product prescribing error [Unknown]
